FAERS Safety Report 20510938 (Version 3)
Quarter: 2022Q2

REPORT INFORMATION
  Report Type: Spontaneous
  Country: ES (occurrence: ES)
  Receive Date: 20220224
  Receipt Date: 20220413
  Transmission Date: 20220720
  Serious: Yes (Other)
  Sender: FDA-Public Use
  Company Number: ES-NOVARTISPH-NVSC2022ES040064

PATIENT
  Age: 72 Year
  Sex: Male

DRUGS (3)
  1. METFORMIN HYDROCHLORIDE [Suspect]
     Active Substance: METFORMIN HYDROCHLORIDE
     Indication: Type 2 diabetes mellitus
     Dosage: UNK
     Route: 048
  2. INSULIN GLARGINE [Suspect]
     Active Substance: INSULIN GLARGINE
     Indication: Type 2 diabetes mellitus
     Dosage: 10 IU
     Route: 065
     Dates: start: 2021
  3. INSULIN GLARGINE [Suspect]
     Active Substance: INSULIN GLARGINE
     Dosage: 14 IU
     Route: 058
     Dates: start: 2021

REACTIONS (8)
  - Hyperglycaemia [Recovering/Resolving]
  - Somnolence [Recovering/Resolving]
  - Hypoglycaemia [Recovered/Resolved]
  - Hypoglycaemia [Recovering/Resolving]
  - Hyperglycaemia [Unknown]
  - Hypoglycaemia [Recovered/Resolved with Sequelae]
  - Product selection error [Unknown]
  - Condition aggravated [Recovering/Resolving]
